FAERS Safety Report 21731888 (Version 1)
Quarter: 2022Q4

REPORT INFORMATION
  Report Type: Other
  Country: PK (occurrence: None)
  Receive Date: 20221215
  Receipt Date: 20221215
  Transmission Date: 20230112
  Serious: Yes (Hospitalization, Other)
  Sender: FDA-Public Use
  Company Number: PK-ROCHE-3237192

PATIENT
  Age: 62 Year
  Sex: Male

DRUGS (12)
  1. TOCILIZUMAB [Suspect]
     Active Substance: TOCILIZUMAB
     Indication: COVID-19
     Route: 042
  2. CEFTRIAXONE [Suspect]
     Active Substance: CEFTRIAXONE
     Indication: COVID-19
     Route: 065
  3. DEXAMETHASONE [Concomitant]
     Active Substance: DEXAMETHASONE
     Indication: COVID-19
     Route: 042
  4. ENOXAPARIN [Concomitant]
     Active Substance: ENOXAPARIN
     Route: 058
  5. ENOXAPARIN [Concomitant]
     Active Substance: ENOXAPARIN
     Route: 058
  6. REMDESIVIR [Concomitant]
     Active Substance: REMDESIVIR
     Indication: COVID-19
     Dosage: LOADING DOSE
  7. REMDESIVIR [Concomitant]
     Active Substance: REMDESIVIR
  8. VITAMIN C [Concomitant]
     Active Substance: ASCORBIC ACID
  9. ZINC [Concomitant]
     Active Substance: ZINC
  10. CHOLECALCIFEROL [Concomitant]
     Active Substance: CHOLECALCIFEROL
  11. LANSOPRAZOLE [Concomitant]
     Active Substance: LANSOPRAZOLE
     Route: 048
  12. PIPERACILLIN AND TAZOBACTAM [Concomitant]
     Active Substance: PIPERACILLIN SODIUM\TAZOBACTAM SODIUM
     Route: 042

REACTIONS (5)
  - Intestinal perforation [Recovered/Resolved]
  - Septic shock [Recovering/Resolving]
  - Off label use [Unknown]
  - Abdominal pain [Unknown]
  - Off label use [Unknown]
